FAERS Safety Report 25680249 (Version 1)
Quarter: 2025Q3

REPORT INFORMATION
  Report Type: Spontaneous
  Country: US (occurrence: US)
  Receive Date: 20250814
  Receipt Date: 20250814
  Transmission Date: 20251021
  Serious: No
  Sender: RECKITT BENCKISER
  Company Number: US-PROD-AS2-212756134-20-25-USA-RB-0004605

PATIENT
  Age: 92 Year
  Sex: Male
  Weight: 68.039 kg

DRUGS (2)
  1. MUCINEX MAXIMUM STRENGTH [Suspect]
     Active Substance: GUAIFENESIN
     Indication: Cough
     Dosage: TOTAL OF 8 TABLETS
     Route: 048
     Dates: start: 20250217, end: 20250316
  2. MUCINEX MAXIMUM STRENGTH [Suspect]
     Active Substance: GUAIFENESIN
     Indication: Productive cough

REACTIONS (1)
  - Drug ineffective [Not Recovered/Not Resolved]
